FAERS Safety Report 20203989 (Version 6)
Quarter: 2022Q3

REPORT INFORMATION
  Report Type: Spontaneous
  Country: US (occurrence: US)
  Receive Date: 20211219
  Receipt Date: 20220719
  Transmission Date: 20221027
  Serious: No
  Sender: FDA-Public Use
  Company Number: US-NOVARTISTESTPH-NVSC2021US290961

PATIENT
  Sex: Female

DRUGS (6)
  1. TAFINLAR [Suspect]
     Active Substance: DABRAFENIB MESYLATE
     Indication: Neoplasm malignant
     Dosage: 75 MG, BID
     Route: 048
     Dates: start: 20210528
  2. TAFINLAR [Suspect]
     Active Substance: DABRAFENIB MESYLATE
     Dosage: 75 MG, BID
     Route: 048
     Dates: start: 202108
  3. TAFINLAR [Suspect]
     Active Substance: DABRAFENIB MESYLATE
     Dosage: 50 MG, Q12H
     Route: 048
     Dates: start: 202106
  4. MEKINIST [Suspect]
     Active Substance: TRAMETINIB DIMETHYL SULFOXIDE
     Indication: Neoplasm malignant
     Dosage: 1.5 MG, QD (EVERY MORNING)
     Route: 048
     Dates: start: 20210630
  5. MEKINIST [Suspect]
     Active Substance: TRAMETINIB DIMETHYL SULFOXIDE
     Dosage: 1.5 MG, QD
     Route: 048
     Dates: start: 202108
  6. MEKINIST [Suspect]
     Active Substance: TRAMETINIB DIMETHYL SULFOXIDE
     Dosage: 1.5 MG, QD
     Route: 048
     Dates: start: 202106

REACTIONS (5)
  - Chills [Unknown]
  - Chapped lips [Unknown]
  - Fatigue [Unknown]
  - Visual impairment [Unknown]
  - Product use in unapproved indication [Unknown]
